FAERS Safety Report 10665810 (Version 3)
Quarter: 2015Q1

REPORT INFORMATION
  Report Type: Spontaneous
  Country: AU (occurrence: AU)
  Receive Date: 20141219
  Receipt Date: 20150129
  Transmission Date: 20150720
  Serious: Yes (Death, Other)
  Sender: FDA-Public Use
  Company Number: AU-ASTRAZENECA-2012SE09789

PATIENT
  Age: 29135 Day
  Sex: Male

DRUGS (1)
  1. ZOLADEX [Suspect]
     Active Substance: GOSERELIN ACETATE
     Indication: PROSTATE CANCER
     Route: 058
     Dates: start: 20110801, end: 20141119

REACTIONS (7)
  - Balance disorder [Not Recovered/Not Resolved]
  - Dizziness [Not Recovered/Not Resolved]
  - Macular degeneration [Unknown]
  - Hot flush [Not Recovered/Not Resolved]
  - Prostate cancer metastatic [Fatal]
  - Nausea [Not Recovered/Not Resolved]
  - Asbestosis [Unknown]

NARRATIVE: CASE EVENT DATE: 20120207
